FAERS Safety Report 20093000 (Version 2)
Quarter: 2022Q3

REPORT INFORMATION
  Report Type: Report from Study
  Country: VE (occurrence: VE)
  Receive Date: 20211120
  Receipt Date: 20220802
  Transmission Date: 20221027
  Serious: Yes (Hospitalization)
  Sender: FDA-Public Use
  Company Number: VE-NOVARTISPH-PHHY2017VE055192

PATIENT
  Age: 68 Year
  Sex: Female
  Weight: 50 kg

DRUGS (8)
  1. GLIVEC [Suspect]
     Active Substance: IMATINIB MESYLATE
     Indication: Chronic myeloid leukaemia
     Dosage: 400 MG, QD (4 OF 100 MG)
     Route: 048
     Dates: start: 200411
  2. GLIVEC [Suspect]
     Active Substance: IMATINIB MESYLATE
     Indication: Leukaemia
     Dosage: 400 MG, QD  (4 OF 100 MG)
     Route: 048
     Dates: start: 20041220
  3. GLIVEC [Suspect]
     Active Substance: IMATINIB MESYLATE
     Dosage: 1 DF, QOD (EVERY ALTERNATIVE DAYS)
     Route: 048
  4. GLIVEC [Suspect]
     Active Substance: IMATINIB MESYLATE
     Dosage: 400 MG (4 OF 100 MG)
     Route: 065
  5. FOLIC ACID [Concomitant]
     Active Substance: FOLIC ACID
     Indication: Product used for unknown indication
     Dosage: 1 DF, QD (IN MORNING)
     Route: 065
  6. VITAMIN C [Concomitant]
     Active Substance: ASCORBIC ACID
     Indication: Nasopharyngitis
     Dosage: UNK
     Route: 065
  7. FARMA D [Concomitant]
     Indication: Bone disorder
     Dosage: 3 DF, QD
     Route: 048
  8. CALCIBON [Concomitant]
     Indication: Bone disorder
     Dosage: ON ALTERNATE DAYS
     Route: 065

REACTIONS (19)
  - Breast pain [Unknown]
  - Pain [Unknown]
  - Pneumonia [Recovering/Resolving]
  - Dyspnoea [Unknown]
  - Vomiting [Unknown]
  - Fear [Unknown]
  - Crying [Unknown]
  - Anosmia [Unknown]
  - Sputum discoloured [Unknown]
  - Haemoptysis [Unknown]
  - Pulmonary pain [Unknown]
  - Anxiety [Unknown]
  - Pyrexia [Unknown]
  - Cough [Unknown]
  - Decreased appetite [Unknown]
  - Weight decreased [Unknown]
  - Malaise [Unknown]
  - Inappropriate schedule of product administration [Unknown]
  - Product availability issue [Unknown]

NARRATIVE: CASE EVENT DATE: 20170301
